FAERS Safety Report 12560221 (Version 1)
Quarter: 2016Q3

REPORT INFORMATION
  Report Type: Spontaneous
  Country: US (occurrence: None)
  Receive Date: 20160714
  Receipt Date: 20160714
  Transmission Date: 20161109
  Serious: No
  Sender: FDA-Public Use
  Company Number: None

PATIENT
  Age: 49 Year
  Sex: Female
  Weight: 78.47 kg

DRUGS (8)
  1. CRANBERRY. [Concomitant]
     Active Substance: CRANBERRY
  2. PROBIOTIC [Concomitant]
     Active Substance: PROBIOTICS NOS
  3. PROLIA [Suspect]
     Active Substance: DENOSUMAB
     Indication: OSTEOPOROSIS
     Dosage: 1 INJECTION(S) EVERY SIX MONTHS GIVEN INTO/UNDER THE SKIN
     Route: 058
     Dates: start: 20150622, end: 20160624
  4. TRAMADOL. [Concomitant]
     Active Substance: TRAMADOL
  5. CALCIUM WITH VITAMIN D [Concomitant]
     Active Substance: CALCIUM\VITAMIN D
  6. FIBER [Concomitant]
     Active Substance: PSYLLIUM HUSK
  7. RIZATRIPTAN. [Concomitant]
     Active Substance: RIZATRIPTAN
  8. MULTIVITAMIN [Concomitant]
     Active Substance: VITAMINS

REACTIONS (8)
  - Chest pain [None]
  - Nausea [None]
  - Headache [None]
  - Diarrhoea [None]
  - Dyspnoea [None]
  - Fatigue [None]
  - Activities of daily living impaired [None]
  - Angina pectoris [None]

NARRATIVE: CASE EVENT DATE: 20160625
